FAERS Safety Report 6656330-6 (Version None)
Quarter: 2010Q1

REPORT INFORMATION
  Report Type: 
  Country: None (occurrence: None)
  Receive Date: 20100326
  Receipt Date: 20100326
  Transmission Date: 20100710
  Serious: Yes (Hospitalization)
  Sender: FDA-Public Use
  Company Number: None

PATIENT
  Age: 68 Year
  Sex: Male
  Weight: 101.1521 kg

DRUGS (18)
  1. NOREPINEPHRINE BITARTRATE [Suspect]
     Indication: PROPHYLAXIS
     Dosage: 400MMOL/2ML TO SKIN
     Route: 062
     Dates: start: 20100301, end: 20100312
  2. NOREPINEPHRINE BITARTRATE [Suspect]
     Indication: RADIATION SKIN INJURY
     Dosage: 400MMOL/2ML TO SKIN
     Route: 062
     Dates: start: 20100301, end: 20100312
  3. ATENOLOL [Concomitant]
  4. VITAMIN D [Concomitant]
  5. FOLVITE [Concomitant]
  6. FUROSEMIDE [Concomitant]
  7. LISINOPRIL [Concomitant]
  8. METAFORMIN [Concomitant]
  9. SIMVASTATIN [Concomitant]
  10. MULTI-VITAMIN [Concomitant]
  11. FISH OIL [Concomitant]
  12. COMBIVENT [Concomitant]
  13. HYDROCODONE [Concomitant]
  14. OXYCODONE [Concomitant]
  15. LORAZEPAM [Concomitant]
  16. ASPIRIN [Concomitant]
  17. MIRALAX [Concomitant]
  18. ALIMTA [Concomitant]

REACTIONS (7)
  - COUGH [None]
  - DEHYDRATION [None]
  - DIARRHOEA [None]
  - DIARRHOEA HAEMORRHAGIC [None]
  - FEBRILE NEUTROPENIA [None]
  - OEDEMA PERIPHERAL [None]
  - PYREXIA [None]
